FAERS Safety Report 23542077 (Version 4)
Quarter: 2024Q3

REPORT INFORMATION
  Report Type: Spontaneous
  Country: DE (occurrence: DE)
  Receive Date: 20240220
  Receipt Date: 20240802
  Transmission Date: 20241016
  Serious: Yes (Hospitalization)
  Sender: NOVO NORDISK
  Company Number: DE-NOVOPROD-1168652

PATIENT
  Age: 888 Month
  Sex: Male

DRUGS (3)
  1. NOVORAPID [Suspect]
     Active Substance: INSULIN ASPART
     Indication: Type 2 diabetes mellitus
     Dosage: 4X 16/8/6/6-8 ADDITIONALLY (IF BLOOD GLUCOSE IS NOT OPTIMAL)
  2. NOVORAPID [Suspect]
     Active Substance: INSULIN ASPART
     Dosage: DOUBLE AMOUNT OF INSULIN
  3. CLOPIDOGREL [Concomitant]
     Active Substance: CLOPIDOGREL BISULFATE
     Dosage: DAILY DOSE: 1X, UNKNOWN DOSAGE

REACTIONS (10)
  - Gastrointestinal disorder [Unknown]
  - Asthenia [Unknown]
  - Dizziness [Unknown]
  - Poisoning [Unknown]
  - Increased insulin requirement [Unknown]
  - Injection site haematoma [Not Recovered/Not Resolved]
  - Injection site mass [Not Recovered/Not Resolved]
  - Blood glucose increased [Unknown]
  - Drug ineffective [Unknown]
  - Wrong technique in product usage process [Unknown]

NARRATIVE: CASE EVENT DATE: 20231223
